FAERS Safety Report 7947301 (Version 6)
Quarter: 2013Q1

REPORT INFORMATION
  Report Type: Spontaneous
  Country: BR (occurrence: None)
  Receive Date: 20110425
  Receipt Date: 20130208
  Transmission Date: 20140127
  Serious: Yes (Hospitalization, Other)
  Sender: FDA-Public Use
  Company Number: MPS1-1000488

PATIENT
  Age: 14 Year
  Sex: Male

DRUGS (1)
  1. ALDURAZYME [Suspect]
     Indication: MUCOPOLYSACCHARIDOSIS I
     Dosage: INTRAVENOUS
     Route: 042
     Dates: start: 20060614, end: 201012

REACTIONS (11)
  - Bedridden [None]
  - Wheelchair user [None]
  - Mucopolysaccharidosis I [None]
  - Disease progression [None]
  - Haemorrhoids [None]
  - Pulmonary function test decreased [None]
  - Visual acuity reduced [None]
  - Pneumonia [None]
  - Fluid overload [None]
  - Cardiac failure [None]
  - Drug ineffective [None]
